FAERS Safety Report 25119818 (Version 3)
Quarter: 2025Q3

REPORT INFORMATION
  Report Type: Report from Study
  Country: GB (occurrence: GB)
  Receive Date: 20250325
  Receipt Date: 20250803
  Transmission Date: 20251021
  Serious: Yes (Hospitalization)
  Sender: ALEXION PHARMACEUTICALS
  Company Number: GB-AstraZeneca-CH-00833135A

PATIENT
  Sex: Female

DRUGS (2)
  1. BENRALIZUMAB [Suspect]
     Active Substance: BENRALIZUMAB
     Indication: Asthma
     Dosage: 30 MILLIGRAM, Q8W
  2. Afrab salbutamol [Concomitant]
     Route: 065

REACTIONS (4)
  - Chest discomfort [Unknown]
  - Wheezing [Unknown]
  - Condition aggravated [Unknown]
  - Product dose omission issue [Unknown]
